FAERS Safety Report 7518874-4 (Version None)
Quarter: 2011Q2

REPORT INFORMATION
  Report Type: 
  Country: None (occurrence: None)
  Receive Date: 20110602
  Receipt Date: 20110525
  Transmission Date: 20111010
  Serious: Yes (Other)
  Sender: FDA-Public Use
  Company Number: FR-BRISTOL-MYERS SQUIBB COMPANY-15784424

PATIENT
  Age: 71 Year
  Sex: Female

DRUGS (4)
  1. TAXOL [Suspect]
     Indication: BREAST CANCER
     Dosage: 1DF:100MG/17ML
     Dates: start: 20100701, end: 20101222
  2. AVASTIN [Suspect]
     Indication: BREAST CANCER
     Dosage: 1DF:25MG/ML
     Route: 042
     Dates: start: 20100701, end: 20110415
  3. ZOMETA [Suspect]
     Indication: BONE DISORDER
     Dosage: 1DF:4MG/5ML 16AUG10-18MAR11 15APR11-UNK
     Route: 042
     Dates: start: 20100816
  4. TAMOXIFEN CITRATE [Suspect]
     Indication: BREAST CANCER
     Dosage: TAMOXIFENE SANDOZ
     Dates: start: 20110107, end: 20110318

REACTIONS (1)
  - OSTEONECROSIS OF JAW [None]
